FAERS Safety Report 23178536 (Version 1)
Quarter: 2023Q4

REPORT INFORMATION
  Report Type: Spontaneous
  Country: US (occurrence: None)
  Receive Date: 20231113
  Receipt Date: 20231113
  Transmission Date: 20240110
  Serious: Yes (Hospitalization)
  Sender: FDA-Public Use
  Company Number: None

PATIENT
  Age: 58 Year
  Sex: Female

DRUGS (2)
  1. PEMBROLIZUMAB [Suspect]
     Active Substance: PEMBROLIZUMAB
     Indication: Head and neck cancer
     Route: 042
     Dates: start: 20231102, end: 20231102
  2. OLAPARIB [Suspect]
     Active Substance: OLAPARIB
     Dosage: FREQUENCY : TWICE A DAY;?
     Route: 048
     Dates: start: 20231102, end: 20231109

REACTIONS (5)
  - Dysphagia [None]
  - Malignant neoplasm progression [None]
  - Metastases to lymph nodes [None]
  - Therapy cessation [None]
  - Hyperglycaemia [None]

NARRATIVE: CASE EVENT DATE: 20231110
